FAERS Safety Report 18175850 (Version 1)
Quarter: 2020Q3

REPORT INFORMATION
  Report Type: Spontaneous
  Country: US (occurrence: US)
  Receive Date: 20200820
  Receipt Date: 20200820
  Transmission Date: 20201103
  Serious: No
  Sender: FDA-Public Use
  Company Number: US-GLAXOSMITHKLINE-US2020AMR163574

PATIENT
  Age: 77 Year
  Sex: Female

DRUGS (2)
  1. ADVAIR DISKUS [Suspect]
     Active Substance: FLUTICASONE PROPIONATE\SALMETEROL XINAFOATE
     Dosage: UNK UNK, QD, 250/50 MG
     Dates: start: 202003
  2. ADVAIR DISKUS [Suspect]
     Active Substance: FLUTICASONE PROPIONATE\SALMETEROL XINAFOATE
     Indication: ASTHMA
     Dosage: UNK UNK, QD, 250/50 MG
     Dates: start: 2005

REACTIONS (4)
  - Dyspnoea [Unknown]
  - Intentional product misuse [Unknown]
  - Inability to afford medication [Unknown]
  - Intentional underdose [Unknown]

NARRATIVE: CASE EVENT DATE: 202003
